FAERS Safety Report 9816360 (Version 1)
Quarter: 2014Q1

REPORT INFORMATION
  Report Type: Spontaneous
  Country: CA (occurrence: CA)
  Receive Date: 20140114
  Receipt Date: 20140114
  Transmission Date: 20141002
  Serious: Yes (Other)
  Sender: FDA-Public Use
  Company Number: CA-B.I. PHARMACEUTICALS,INC./RIDGEFIELD-2014-BI-01482CN

PATIENT
  Age: 73 Year
  Sex: Male
  Weight: 91 kg

DRUGS (8)
  1. SPIRIVA [Suspect]
     Route: 065
  2. ADVAIR DISKUS [Suspect]
     Route: 065
  3. ALLOPURINOL [Concomitant]
  4. FUROSEMIDE [Concomitant]
  5. PROSCAR [Concomitant]
  6. TEMAZEPAM [Concomitant]
  7. TERAZOSIN [Concomitant]
  8. TIAZAC [Concomitant]
     Dosage: FORMULATION: SUSTAINED RELEASE CAPSULE

REACTIONS (3)
  - Angioedema [Recovered/Resolved]
  - Lip swelling [Recovered/Resolved]
  - Tongue oedema [Recovered/Resolved]
